FAERS Safety Report 21977912 (Version 1)
Quarter: 2023Q1

REPORT INFORMATION
  Report Type: Spontaneous
  Country: US (occurrence: US)
  Receive Date: 20230210
  Receipt Date: 20230210
  Transmission Date: 20230418
  Serious: Yes (Hospitalization)
  Sender: FDA-Public Use
  Company Number: US-MYLANLABS-2023M1013793

PATIENT
  Age: 34 Year
  Sex: Male

DRUGS (3)
  1. ESMOLOL [Suspect]
     Active Substance: ESMOLOL HYDROCHLORIDE
     Indication: Blood pressure management
     Dosage: UNK; INFUSION; THE ESMOLOL FORMULATION UTILIZED CONTAINED APPROXIMATELY...
     Route: 042
  2. ESMOLOL [Suspect]
     Active Substance: ESMOLOL HYDROCHLORIDE
     Indication: Drug therapy
  3. NITROGLYCERIN [Concomitant]
     Active Substance: NITROGLYCERIN
     Indication: Blood pressure management
     Dosage: UNK
     Route: 065

REACTIONS (2)
  - Hyponatraemia [Recovered/Resolved]
  - Seizure [Recovered/Resolved]
